FAERS Safety Report 10527906 (Version 2)
Quarter: 2014Q4

REPORT INFORMATION
  Report Type: Spontaneous
  Country: US (occurrence: US)
  Receive Date: 20141020
  Receipt Date: 20141223
  Transmission Date: 20150528
  Serious: No
  Sender: FDA-Public Use
  Company Number: US-PFIZER INC-2014282982

PATIENT
  Age: 58 Year
  Sex: Female

DRUGS (4)
  1. GABAPENTIN. [Suspect]
     Active Substance: GABAPENTIN
     Dosage: UNK
  2. TIZANIDINE HYDROCHLORIDE. [Interacting]
     Active Substance: TIZANIDINE HYDROCHLORIDE
     Dosage: UNK
  3. BACLOFEN. [Interacting]
     Active Substance: BACLOFEN
     Dosage: UNK
  4. AMPYRA [Interacting]
     Active Substance: DALFAMPRIDINE
     Dosage: 10 MG, 2X/DAY
     Dates: start: 20130125

REACTIONS (2)
  - Drug interaction [Unknown]
  - Blood pressure decreased [Unknown]
